FAERS Safety Report 4287677-9 (Version None)
Quarter: 2004Q1

REPORT INFORMATION
  Report Type: 
  Country: None (occurrence: None)
  Receive Date: 20040209
  Receipt Date: 20030826
  Transmission Date: 20041129
  Serious: No
  Sender: FDA-Public Use
  Company Number: US-GLAXOSMITHKLINE-A0423610A

PATIENT
  Sex: Female

DRUGS (1)
  1. PAXIL [Suspect]
     Dosage: 12.5MG SINGLE DOSE
     Route: 048
     Dates: start: 20030819, end: 20030819

REACTIONS (4)
  - FATIGUE [None]
  - FLUSHING [None]
  - HYPERHIDROSIS [None]
  - MOVEMENT DISORDER [None]
